FAERS Safety Report 16680818 (Version 1)
Quarter: 2019Q3

REPORT INFORMATION
  Report Type: Spontaneous
  Country: US (occurrence: US)
  Receive Date: 20190808
  Receipt Date: 20190808
  Transmission Date: 20191004
  Serious: Yes (Other)
  Sender: FDA-Public Use
  Company Number: US-PFIZER INC-2010096630

PATIENT
  Age: 46 Year
  Sex: Female
  Weight: 82.54 kg

DRUGS (7)
  1. SOMAVERT [Suspect]
     Active Substance: PEGVISOMANT
     Dosage: 20 MG, 1X/DAY
     Dates: start: 201004
  2. GLIPIZIDE. [Concomitant]
     Active Substance: GLIPIZIDE
     Indication: DIABETES MELLITUS
     Dosage: UNK
  3. METFORMIN [Concomitant]
     Active Substance: METFORMIN HYDROCHLORIDE
     Indication: DIABETES MELLITUS
     Dosage: UNK
  4. SOMAVERT [Suspect]
     Active Substance: PEGVISOMANT
     Indication: HYPOTHALAMO-PITUITARY DISORDER
     Dosage: 20 MG, 1X/DAY
     Dates: start: 2009
  5. SOMAVERT [Suspect]
     Active Substance: PEGVISOMANT
     Dosage: 20 MG, DAILY
     Route: 058
  6. SOMAVERT [Suspect]
     Active Substance: PEGVISOMANT
     Indication: BRAIN CANCER METASTATIC
     Dosage: 10 MG, 1X/DAY
  7. SOMAVERT [Suspect]
     Active Substance: PEGVISOMANT
     Dosage: 25 MG, DAILY
     Route: 058
     Dates: start: 20170919

REACTIONS (8)
  - Therapeutic response unexpected [Unknown]
  - Injection site nodule [Not Recovered/Not Resolved]
  - Bone pain [Not Recovered/Not Resolved]
  - Chromaturia [Not Recovered/Not Resolved]
  - Headache [Not Recovered/Not Resolved]
  - Pigmentation disorder [Unknown]
  - Urine odour abnormal [Not Recovered/Not Resolved]
  - Alopecia [Not Recovered/Not Resolved]

NARRATIVE: CASE EVENT DATE: 2009
